FAERS Safety Report 17588492 (Version 1)
Quarter: 2020Q1

REPORT INFORMATION
  Report Type: Report from Study
  Country: AU (occurrence: AU)
  Receive Date: 20200326
  Receipt Date: 20200326
  Transmission Date: 20200409
  Serious: Yes (Other)
  Sender: FDA-Public Use
  Company Number: AU-BEH-2020113834

PATIENT
  Age: 89 Year
  Sex: Female

DRUGS (7)
  1. HIZENTRA [Suspect]
     Active Substance: HUMAN IMMUNOGLOBULIN G
     Indication: PRIMARY IMMUNODEFICIENCY SYNDROME
     Dosage: 6 GRAM (30 ML), QW
     Route: 058
     Dates: start: 20200225, end: 20200225
  2. HIZENTRA [Suspect]
     Active Substance: HUMAN IMMUNOGLOBULIN G
     Dosage: UNK
     Route: 058
  3. HIZENTRA [Suspect]
     Active Substance: HUMAN IMMUNOGLOBULIN G
     Dosage: 6 GR (30ML), QW
     Route: 058
     Dates: start: 20200303
  4. HIZENTRA [Suspect]
     Active Substance: HUMAN IMMUNOGLOBULIN G
     Dosage: UNK
     Route: 058
  5. HIZENTRA [Suspect]
     Active Substance: HUMAN IMMUNOGLOBULIN G
     Dosage: 6 GR (30ML), QW
     Route: 058
     Dates: start: 20200302
  6. HIZENTRA [Suspect]
     Active Substance: HUMAN IMMUNOGLOBULIN G
     Dosage: 6 GR (30ML), QW
     Route: 058
     Dates: start: 20200317
  7. PREDNISONE. [Concomitant]
     Active Substance: PREDNISONE
     Dosage: UNK
     Route: 065

REACTIONS (12)
  - Lower respiratory tract infection [Not Recovered/Not Resolved]
  - Gait disturbance [Unknown]
  - Productive cough [Unknown]
  - Infusion site swelling [Unknown]
  - Angina pectoris [Unknown]
  - Infusion site swelling [Unknown]
  - Sputum discoloured [Unknown]
  - Infusion site erythema [Unknown]
  - Musculoskeletal pain [Unknown]
  - Pyrexia [Unknown]
  - Infusion site discomfort [Recovered/Resolved]
  - Back pain [Unknown]

NARRATIVE: CASE EVENT DATE: 20200225
